FAERS Safety Report 4460396-1 (Version None)
Quarter: 2004Q3

REPORT INFORMATION
  Report Type: 
  Country: None (occurrence: None)
  Receive Date: 20040928
  Receipt Date: 20040513
  Transmission Date: 20050211
  Serious: No
  Sender: FDA-Public Use
  Company Number: US-GLAXOSMITHKLINE-A0510755A

PATIENT
  Age: 49 Year
  Sex: Female

DRUGS (4)
  1. SEREVENT [Suspect]
     Indication: ILL-DEFINED DISORDER
     Dosage: 1PUFF TWICE PER DAY
     Route: 055
     Dates: start: 20040510, end: 20040513
  2. GLUCOPHAGE [Concomitant]
  3. AMARYL [Concomitant]
  4. AVAPRO [Concomitant]

REACTIONS (2)
  - CHEST DISCOMFORT [None]
  - CHEST PAIN [None]
